FAERS Safety Report 5886085-4 (Version None)
Quarter: 2008Q3

REPORT INFORMATION
  Report Type: 
  Country: None (occurrence: None)
  Receive Date: 20080912
  Receipt Date: 20080905
  Transmission Date: 20090109
  Serious: Yes (Hospitalization)
  Sender: FDA-Public Use
  Company Number: 93382

PATIENT
  Age: 73 Year
  Sex: Female

DRUGS (9)
  1. SIMVASTATIN [Suspect]
     Dosage: 20 MG/ QOD/ORAL
     Route: 048
     Dates: start: 20061001, end: 20070801
  2. AMIODARONE HCL [Suspect]
     Indication: ATRIAL FIBRILLATION
     Dosage: 200 MG/QID/ORAL
     Route: 048
     Dates: start: 20070701, end: 20070801
  3. ACENOCUMAROL [Concomitant]
  4. ACETYSALICYLIC ACID [Concomitant]
  5. CARVEDILOL [Concomitant]
  6. OMEPRAZOLE [Concomitant]
  7. SIMVASTATIN [Concomitant]
  8. ........................... [Concomitant]
  9. SPIRONOLACTONE [Concomitant]

REACTIONS (4)
  - DRUG INTERACTION [None]
  - PANCREATITIS [None]
  - RENAL FAILURE ACUTE [None]
  - RHABDOMYOLYSIS [None]
